FAERS Safety Report 4332131-9 (Version None)
Quarter: 2004Q1

REPORT INFORMATION
  Report Type: 
  Country: None (occurrence: None)
  Receive Date: 20040330
  Receipt Date: 20040318
  Transmission Date: 20041129
  Serious: Yes (Life-Threatening, Hospitalization)
  Sender: FDA-Public Use
  Company Number: 04P-087-0254266-00

PATIENT
  Age: 79 Year
  Sex: Female
  Weight: 58 kg

DRUGS (13)
  1. BIAXIN [Suspect]
     Indication: UPPER RESPIRATORY TRACT INFLAMMATION
     Dosage: 200 MG, 1 IN 1 D, PER ORAL
     Route: 048
     Dates: start: 20040130, end: 20040130
  2. GLYBURIDE [Suspect]
     Indication: DIABETES MELLITUS
     Dosage: 1 IN 1 D, PER ORAL
     Route: 048
     Dates: start: 20010523, end: 20040130
  3. CANDESARTAN CILEXETIL [Concomitant]
  4. PRAVASTATIN SODIUM [Concomitant]
  5. PROBUCOL [Concomitant]
  6. ETHYL LOFLAZEPATE [Concomitant]
  7. ALFACALCIDOL [Concomitant]
  8. PL [Concomitant]
  9. DEXTROMETHORPHAN HYDROBROMIDE [Concomitant]
  10. ALDIOXA [Concomitant]
  11. FELBINAC [Concomitant]
  12. THEOPHYLLINE [Concomitant]
  13. TIPEPIDINE HIBENZATE [Concomitant]

REACTIONS (3)
  - DRUG INTERACTION [None]
  - FALL [None]
  - HYPOGLYCAEMIC COMA [None]
